FAERS Safety Report 13674662 (Version 1)
Quarter: 2017Q2

REPORT INFORMATION
  Report Type: Spontaneous
  Country: US (occurrence: US)
  Receive Date: 20170621
  Receipt Date: 20170621
  Transmission Date: 20170830
  Serious: Yes (Other)
  Sender: FDA-Public Use
  Company Number: US-BAYER-2017-116118

PATIENT
  Sex: Female

DRUGS (3)
  1. LOTRIMIN [Suspect]
     Active Substance: CLOTRIMAZOLE
     Indication: PRODUCT USED FOR UNKNOWN INDICATION
     Dosage: UNK
     Route: 061
  2. ZITHROMAX [Concomitant]
     Active Substance: AZITHROMYCIN DIHYDRATE
     Route: 065
  3. HUMIRA [Concomitant]
     Active Substance: ADALIMUMAB
     Dates: start: 20160815

REACTIONS (6)
  - Rash [Unknown]
  - Tooth abscess [Unknown]
  - Tinea infection [Unknown]
  - Adverse drug reaction [Unknown]
  - Pruritus [Unknown]
  - Drug ineffective [Unknown]
